FAERS Safety Report 26086886 (Version 1)
Quarter: 2025Q4

REPORT INFORMATION
  Report Type: Spontaneous
  Country: US (occurrence: US)
  Receive Date: 20251125
  Receipt Date: 20251125
  Transmission Date: 20260118
  Serious: Yes (Hospitalization)
  Sender: MYLAN
  Company Number: US-MYLANLABS-2025M1098777

PATIENT
  Age: 5 Year
  Sex: Female

DRUGS (20)
  1. ACETAMINOPHEN [Suspect]
     Active Substance: ACETAMINOPHEN
     Indication: Product used for unknown indication
     Dosage: UNK
  2. ACETAMINOPHEN [Suspect]
     Active Substance: ACETAMINOPHEN
     Dosage: UNK
     Route: 048
  3. ACETAMINOPHEN [Suspect]
     Active Substance: ACETAMINOPHEN
     Dosage: UNK
     Route: 048
  4. ACETAMINOPHEN [Suspect]
     Active Substance: ACETAMINOPHEN
     Dosage: UNK
  5. FOMEPIZOLE [Suspect]
     Active Substance: FOMEPIZOLE
     Indication: Accidental overdose
     Dosage: RECEIVED ONE DOSE
  6. FOMEPIZOLE [Suspect]
     Active Substance: FOMEPIZOLE
     Indication: Analgesic drug level increased
     Dosage: RECEIVED ONE DOSE
     Route: 065
  7. FOMEPIZOLE [Suspect]
     Active Substance: FOMEPIZOLE
     Dosage: RECEIVED ONE DOSE
     Route: 065
  8. FOMEPIZOLE [Suspect]
     Active Substance: FOMEPIZOLE
     Dosage: RECEIVED ONE DOSE
  9. ACETYLCYSTEINE [Suspect]
     Active Substance: ACETYLCYSTEINE
     Indication: Accidental overdose
     Dosage: UNK
  10. ACETYLCYSTEINE [Suspect]
     Active Substance: ACETYLCYSTEINE
     Indication: Analgesic drug level increased
     Dosage: UNK
     Route: 065
  11. ACETYLCYSTEINE [Suspect]
     Active Substance: ACETYLCYSTEINE
     Dosage: UNK
     Route: 065
  12. ACETYLCYSTEINE [Suspect]
     Active Substance: ACETYLCYSTEINE
     Dosage: UNK
  13. VITAMIN K [Suspect]
     Active Substance: PHYTONADIONE
     Indication: Accidental overdose
     Dosage: UNK
  14. VITAMIN K [Suspect]
     Active Substance: PHYTONADIONE
     Indication: Analgesic drug level increased
     Dosage: UNK
     Route: 065
  15. VITAMIN K [Suspect]
     Active Substance: PHYTONADIONE
     Dosage: UNK
     Route: 065
  16. VITAMIN K [Suspect]
     Active Substance: PHYTONADIONE
     Dosage: UNK
  17. DEXTROSE [Suspect]
     Active Substance: DEXTROSE MONOHYDRATE
     Indication: Accidental overdose
     Dosage: UNK
  18. DEXTROSE [Suspect]
     Active Substance: DEXTROSE MONOHYDRATE
     Indication: Analgesic drug level increased
     Dosage: UNK
     Route: 065
  19. DEXTROSE [Suspect]
     Active Substance: DEXTROSE MONOHYDRATE
     Dosage: UNK
     Route: 065
  20. DEXTROSE [Suspect]
     Active Substance: DEXTROSE MONOHYDRATE
     Dosage: UNK

REACTIONS (11)
  - Accidental overdose [Recovering/Resolving]
  - Acute hepatic failure [Recovering/Resolving]
  - Analgesic drug level increased [Recovering/Resolving]
  - Product administered to patient of inappropriate age [Recovering/Resolving]
  - Coagulopathy [Recovering/Resolving]
  - Encephalopathy [Recovering/Resolving]
  - Brain oedema [Recovering/Resolving]
  - Intracranial pressure increased [Recovering/Resolving]
  - Hepatic artery occlusion [Recovering/Resolving]
  - Hepatic artery thrombosis [Recovering/Resolving]
  - Drug ineffective [Unknown]
